FAERS Safety Report 6310289-X (Version None)
Quarter: 2009Q3

REPORT INFORMATION
  Report Type: 
  Country: None (occurrence: None)
  Receive Date: 20090814
  Receipt Date: 20090805
  Transmission Date: 20100115
  Serious: Yes (Hospitalization)
  Sender: FDA-Public Use
  Company Number: PHHY2009CH32519

PATIENT
  Age: 80 Year
  Sex: Male

DRUGS (11)
  1. DIOVAN [Suspect]
     Dosage: 80 MG, QD
  2. ALDACTONE [Suspect]
     Dosage: 50 MG, QD
  3. BELOC ZOK [Suspect]
     Dosage: 50 MG, QD
  4. ASPIRIN [Concomitant]
     Dosage: 100 MG, QD
  5. NEXIUM [Concomitant]
     Dosage: 40 MG, QD
  6. CITALOPRAM HYDROBROMIDE [Concomitant]
     Dosage: 20 MG, QD
  7. PRAVASTATIN [Concomitant]
     Dosage: 40 MG, QD
  8. SINTROM [Concomitant]
     Dosage: UNK
  9. BECOZYM [Concomitant]
     Dosage: 1 DF, QD
     Dates: start: 20090331
  10. BENERVA [Concomitant]
     Dosage: 300 MG, QD
     Dates: start: 20090331
  11. IMODIUM [Concomitant]
     Dosage: UNK
     Dates: start: 20090331, end: 20090407

REACTIONS (7)
  - CARDIAC FAILURE [None]
  - HAEMODYNAMIC INSTABILITY [None]
  - HYPOTENSION [None]
  - HYPOVOLAEMIA [None]
  - HYPOVOLAEMIC SHOCK [None]
  - METABOLIC ACIDOSIS [None]
  - TACHYCARDIA [None]
